FAERS Safety Report 6330589-7 (Version None)
Quarter: 2009Q3

REPORT INFORMATION
  Report Type: 
  Country: None (occurrence: None)
  Receive Date: 20090827
  Receipt Date: 20090821
  Transmission Date: 20100115
  Serious: Yes (Life-Threatening)
  Sender: FDA-Public Use
  Company Number: JP-ASTRAZENECA-2009SE02804

PATIENT
  Age: 74 Year
  Sex: Male

DRUGS (6)
  1. CASODEX [Suspect]
     Indication: PROSTATE CANCER
     Route: 048
     Dates: start: 20040401, end: 20090301
  2. CASODEX [Suspect]
     Route: 048
     Dates: start: 20090603, end: 20090605
  3. SUNRYTHM [Concomitant]
     Route: 048
     Dates: start: 20090517, end: 20090605
  4. TAKEPRON [Concomitant]
     Route: 048
     Dates: start: 20090519
  5. GASMOTIN [Concomitant]
     Route: 048
     Dates: start: 20090520
  6. DIGOSIN [Concomitant]
     Route: 048
     Dates: start: 20090520

REACTIONS (1)
  - PULMONARY INFARCTION [None]
